FAERS Safety Report 20246855 (Version 2)
Quarter: 2022Q1

REPORT INFORMATION
  Report Type: Spontaneous
  Country: CH (occurrence: CH)
  Receive Date: 20211229
  Receipt Date: 20220121
  Transmission Date: 20220423
  Serious: Yes (Other)
  Sender: FDA-Public Use
  Company Number: CH-PFIZER INC-202101837333

PATIENT
  Age: 45 Year
  Sex: Female

DRUGS (3)
  1. RITUXIMAB [Suspect]
     Active Substance: RITUXIMAB
     Indication: Immunoglobulin G4 related disease
     Dosage: 1000 MG
     Route: 042
     Dates: start: 20170310, end: 20170324
  2. RITUXIMAB [Suspect]
     Active Substance: RITUXIMAB
     Dosage: UNK
     Route: 042
     Dates: start: 20180319, end: 2019
  3. PREDNISONE [Concomitant]
     Active Substance: PREDNISONE
     Indication: Immunoglobulin G4 related disease
     Dosage: 20 MG, 1X/DAY

REACTIONS (1)
  - Anaphylactic reaction [Unknown]

NARRATIVE: CASE EVENT DATE: 20190101
